FAERS Safety Report 10206599 (Version 1)
Quarter: 2014Q2

REPORT INFORMATION
  Report Type: Spontaneous
  Country: US (occurrence: US)
  Receive Date: 20140530
  Receipt Date: 20140530
  Transmission Date: 20141212
  Serious: No
  Sender: FDA-Public Use
  Company Number: US-GLAXOSMITHKLINE-A1053117A

PATIENT
  Sex: Female

DRUGS (2)
  1. FLOLAN [Suspect]
     Indication: PULMONARY ARTERIAL HYPERTENSION
     Dosage: 39.06NGKM CONTINUOUS
     Route: 042
     Dates: start: 20070105
  2. ADCIRCA [Suspect]
     Indication: PULMONARY ARTERIAL HYPERTENSION
     Dates: end: 20131105

REACTIONS (11)
  - Exercise test abnormal [Unknown]
  - Headache [Unknown]
  - Tinnitus [Unknown]
  - Pain in jaw [Unknown]
  - Rash generalised [Unknown]
  - Gastrooesophageal reflux disease [Unknown]
  - Nausea [Unknown]
  - Vomiting [Unknown]
  - Nasopharyngitis [Unknown]
  - Nasal congestion [Unknown]
  - Ear pain [Unknown]
